FAERS Safety Report 7296854-4 (Version None)
Quarter: 2011Q1

REPORT INFORMATION
  Report Type: 
  Country: None (occurrence: None)
  Receive Date: 20110216
  Receipt Date: 20110213
  Transmission Date: 20110831
  Serious: Yes (Other)
  Sender: FDA-Public Use
  Company Number: US-JNJCH-2011003925

PATIENT
  Age: 62 Year
  Sex: Male
  Weight: 81.6 kg

DRUGS (2)
  1. ROLAIDS [Suspect]
     Indication: DYSPEPSIA
     Dosage: TEXT:1 TABLET UNSPECIFIED
     Route: 048
  2. HUMULIN R [Concomitant]
     Indication: PRODUCT USED FOR UNKNOWN INDICATION
     Dosage: TEXT:UNKNOWN
     Route: 065

REACTIONS (3)
  - BLOOD GLUCOSE INCREASED [None]
  - EXPIRED DRUG ADMINISTERED [None]
  - MALAISE [None]
